FAERS Safety Report 15788799 (Version 1)
Quarter: 2018Q4

REPORT INFORMATION
  Report Type: Spontaneous
  Country: US (occurrence: US)
  Receive Date: 20181231
  Receipt Date: 20181231
  Transmission Date: 20190205
  Serious: No
  Sender: FDA-Public Use
  Company Number: None

PATIENT

DRUGS (1)
  1. 0.30% POTASSIUM CHLORIDE IN 5% DEXTROSE AND 0.45% SODIUM CHLORIDE INJE [Suspect]
     Active Substance: DEXTROSE\DEXTROSE MONOHYDRATE\POTASSIUM CHLORIDE\SODIUM CHLORIDE

REACTIONS (2)
  - Product storage error [None]
  - Product use complaint [None]
